FAERS Safety Report 6594298-1 (Version None)
Quarter: 2010Q1

REPORT INFORMATION
  Report Type: 
  Country: None (occurrence: None)
  Receive Date: 20100222
  Receipt Date: 20100216
  Transmission Date: 20100710
  Serious: Yes (Other)
  Sender: FDA-Public Use
  Company Number: FR-BRISTOL-MYERS SQUIBB COMPANY-14978381

PATIENT
  Age: 43 Year
  Sex: Male

DRUGS (5)
  1. CISPLATIN [Suspect]
     Indication: THYMOMA MALIGNANT
     Dosage: RECEIVED 2ND CYCLE ON 07MAR08 FIRST LINE CHEMO:2007
     Dates: start: 20070101
  2. IFOSFAMIDE [Suspect]
     Indication: THYMOMA MALIGNANT
     Dosage: SECOND CYC ON 07MAR08
     Dates: start: 20070101
  3. ETOPOSIDE [Suspect]
     Indication: THYMOMA MALIGNANT
     Dosage: SECOND CYC ON 07MAR08
     Dates: start: 20070101
  4. DOCETAXEL [Suspect]
     Indication: THYMOMA MALIGNANT
     Dosage: RECEIVED 2ND CYCLE ON 07MAR08
     Dates: start: 20080101
  5. FLUOROURACIL [Suspect]
     Indication: THYMOMA MALIGNANT
     Dosage: RECEIVED 2ND CYCLE ON 07MAR08
     Dates: start: 20080101

REACTIONS (2)
  - IMPAIRED HEALING [None]
  - MALIGNANT NEOPLASM PROGRESSION [None]
